FAERS Safety Report 6167652-X (Version None)
Quarter: 2009Q2

REPORT INFORMATION
  Report Type: 
  Country: None (occurrence: None)
  Receive Date: 20090424
  Receipt Date: 20090420
  Transmission Date: 20091009
  Serious: Yes (Death, Life-Threatening, Hospitalization, Other)
  Sender: FDA-Public Use
  Company Number: PHHY2009BR15078

PATIENT
  Sex: Female

DRUGS (9)
  1. DIOVAN [Suspect]
     Dosage: 80 MG, QD
     Route: 048
     Dates: start: 20060101
  2. ERANZ [Concomitant]
     Indication: DEMENTIA ALZHEIMER'S TYPE
     Dosage: 1/2 TABLET A DAY PER MORNING
     Route: 048
  3. PANTOZOL [Concomitant]
     Indication: GASTROINTESTINAL DISORDER
     Dosage: 1 TABLET IN MORNING, PRN
     Route: 048
  4. VITAMIN E [Concomitant]
  5. AAS [Concomitant]
     Dosage: ADMINISTERED AT LUNCH
  6. LIPITOR [Concomitant]
     Indication: VASCULAR GRAFT
     Dosage: 1/2 TABLET AT DINNER
     Route: 048
  7. HYGROTON [Concomitant]
     Dosage: 12.5 MG, 1 TABLET IN MORNING ON MONDAY, WEDNESDAY AND FRIDAY
     Route: 048
  8. ATLANSIL ^ROEMMERS^ [Concomitant]
     Indication: CARDIAC DISORDER
     Dosage: 100 MG, 1 TABLET ON TUESDAY, THURSDAY AND SATURDAY
     Route: 048
  9. MACRODANTINA [Concomitant]
     Indication: URINARY TRACT INFECTION
     Dosage: 100 MG, 1 TABLET FROM MONDAY TO FRIDAY
     Route: 048

REACTIONS (15)
  - ACUTE PULMONARY OEDEMA [None]
  - AGITATION [None]
  - APPARENT LIFE THREATENING EVENT [None]
  - CARDIAC ARREST [None]
  - COUGH [None]
  - DYSPNOEA [None]
  - HEART RATE INCREASED [None]
  - HYPERHIDROSIS [None]
  - HYPERTENSION [None]
  - INFARCTION [None]
  - LUNG DISORDER [None]
  - LYMPHADENOPATHY [None]
  - RENAL IMPAIRMENT [None]
  - RHINITIS [None]
  - SWELLING [None]
